FAERS Safety Report 7397271-9 (Version None)
Quarter: 2011Q2

REPORT INFORMATION
  Report Type: 
  Country: None (occurrence: None)
  Receive Date: 20110406
  Receipt Date: 20110328
  Transmission Date: 20111010
  Serious: Yes (Hospitalization, Other)
  Sender: FDA-Public Use
  Company Number: JP-JNJFOC-20110205807

PATIENT
  Sex: Female

DRUGS (8)
  1. METHOTREXATE [Concomitant]
     Indication: RHEUMATOID ARTHRITIS
     Route: 048
  2. BISOLVON [Concomitant]
     Indication: PNEUMONIA
     Route: 042
  3. FINIBAX [Suspect]
     Indication: HEPATIC NEOPLASM
     Dosage: WAS GIVEN FOR 10 DAYS
     Route: 041
  4. ASPARA K [Concomitant]
     Indication: PNEUMONIA
     Route: 041
  5. VEEN-D [Concomitant]
     Indication: PNEUMONIA
     Route: 041
  6. FINIBAX [Suspect]
     Indication: PNEUMONIA
     Dosage: WAS GIVEN FOR 10 DAYS
     Route: 041
  7. MEDROL [Concomitant]
     Indication: RHEUMATOID ARTHRITIS
     Route: 048
  8. TPN ELECTROLYTES IN PLASTIC CONTAINER [Concomitant]
     Indication: PNEUMONIA
     Route: 041

REACTIONS (2)
  - INTERSTITIAL LUNG DISEASE [None]
  - OFF LABEL USE [None]
